FAERS Safety Report 7740350-4 (Version None)
Quarter: 2011Q3

REPORT INFORMATION
  Report Type: 
  Country: None (occurrence: None)
  Receive Date: 20110909
  Receipt Date: 20110906
  Transmission Date: 20111222
  Serious: Yes (Death, Hospitalization)
  Sender: FDA-Public Use
  Company Number: CA-B.I. PHARMACEUTICALS,INC./RIDGEFIELD-2011-CN-01293CN

PATIENT
  Age: 76 Year
  Sex: Female

DRUGS (5)
  1. CHOLESTEROL MEDICATION [Concomitant]
     Indication: BLOOD CHOLESTEROL
  2. ANTIHYPERTENSIVE [Concomitant]
     Indication: HYPERTENSION
  3. VITAMIN D [Concomitant]
  4. PRADAXA [Suspect]
     Indication: HEART VALVE REPLACEMENT
     Dosage: 220 MG
     Dates: start: 20110705
  5. CALCIUM CARBONATE [Concomitant]

REACTIONS (1)
  - HAEMORRHAGE [None]
